FAERS Safety Report 10599044 (Version 1)
Quarter: 2014Q4

REPORT INFORMATION
  Report Type: Spontaneous
  Country: CN (occurrence: CN)
  Receive Date: 20141121
  Receipt Date: 20141121
  Transmission Date: 20150529
  Serious: Yes (Other)
  Sender: FDA-Public Use
  Company Number: PHHY2014CN147744

PATIENT
  Age: 27 Year
  Sex: Female

DRUGS (9)
  1. CICLOSPORIN [Suspect]
     Active Substance: CYCLOSPORINE
     Indication: PROPHYLAXIS AGAINST GRAFT VERSUS HOST DISEASE
     Dosage: 10 MG/KG, QD, ONE DAY BEFORE TRANSPLANTATION, FOR 30 DAYS AND THEN TAPERED
     Route: 048
  2. METHOTREXATE [Suspect]
     Active Substance: METHOTREXATE
     Dosage: 10 MG/M2, T 3RD, 6TH, 11TH DAYS AFTER TRANSPLANTION
     Route: 048
  3. MYLERAN [Concomitant]
     Active Substance: BUSULFAN
     Dosage: 0.8 MG/KG, EVERY 6 HOURS FOR 3 DAYS
     Route: 042
  4. CYCLOPHOSPHAMIDE. [Concomitant]
     Active Substance: CYCLOPHOSPHAMIDE
     Indication: TRANSPLANT
     Dosage: 1.8 G/M2, FOR 2 DAYS
     Route: 065
  5. METHOTREXATE [Suspect]
     Active Substance: METHOTREXATE
     Indication: PROPHYLAXIS AGAINST GRAFT VERSUS HOST DISEASE
     Dosage: 15 MG/M2, AT 1ST DAY
     Route: 048
  6. MYCOPHENOLATE MOFETIL. [Suspect]
     Active Substance: MYCOPHENOLATE MOFETIL
     Indication: PROPHYLAXIS AGAINST GRAFT VERSUS HOST DISEASE
     Dosage: 0.5 G, BID, AT 7TH DAY AFTER TRANSPLANTATION
     Route: 048
  7. MYLERAN [Concomitant]
     Active Substance: BUSULFAN
     Indication: TRANSPLANT
     Dosage: 1 MG/KG, EVERY 6 HOURS FOR 3 DAYS
     Route: 048
  8. IDARUBICIN [Concomitant]
     Active Substance: IDARUBICIN
     Indication: TRANSPLANT
     Dosage: 30 MG, UNK
     Route: 065
  9. METHYLPREDNISOLONE. [Suspect]
     Active Substance: METHYLPREDNISOLONE
     Indication: PROPHYLAXIS AGAINST GRAFT VERSUS HOST DISEASE
     Route: 065

REACTIONS (9)
  - Generalised tonic-clonic seizure [Unknown]
  - Hallucination, auditory [Unknown]
  - Partial seizures [Unknown]
  - Lung infection [Unknown]
  - Acute graft versus host disease in skin [Unknown]
  - Neurotoxicity [Unknown]
  - Blindness [Unknown]
  - Amnesia [Unknown]
  - Hallucination, visual [Unknown]
